FAERS Safety Report 10112267 (Version 2)
Quarter: 2014Q2

REPORT INFORMATION
  Report Type: Spontaneous
  Country: IT (occurrence: IT)
  Receive Date: 20140425
  Receipt Date: 20140602
  Transmission Date: 20141212
  Serious: Yes (Life-Threatening, Hospitalization, Other)
  Sender: FDA-Public Use
  Company Number: IT-SHIRE-IT201401393

PATIENT
  Age: 47 Year
  Sex: Female
  Weight: 55 kg

DRUGS (5)
  1. XAGRID [Suspect]
     Indication: ESSENTIAL THROMBOCYTHAEMIA
     Dosage: 1 MG, UNKNOWN  (0.5MG, 2 CAPS/DAY)
     Route: 048
     Dates: start: 20031010, end: 20040306
  2. XAGRID [Suspect]
     Dosage: 1 MG, UNKNOWN  (0.5MG, 2 CAPS/DAY)
     Route: 048
     Dates: start: 200708, end: 201207
  3. ASA [Concomitant]
     Indication: ANTIPLATELET THERAPY
     Dosage: 100 MG, 1X/DAY:QD
     Route: 048
     Dates: start: 20001211
  4. HYDROXYUREA [Concomitant]
     Indication: ESSENTIAL THROMBOCYTHAEMIA
     Dosage: 500 MG, 1X/DAY:QD
     Route: 065
     Dates: start: 200403
  5. BETA BLOCKING AGENTS [Concomitant]
     Indication: PRODUCT USED FOR UNKNOWN INDICATION
     Dosage: UNK, UNKNOWN
     Route: 065

REACTIONS (3)
  - Acute coronary syndrome [Recovered/Resolved with Sequelae]
  - Myelofibrosis [Not Recovered/Not Resolved]
  - Arteriosclerosis coronary artery [Recovered/Resolved with Sequelae]
